FAERS Safety Report 7997876-8 (Version None)
Quarter: 2011Q4

REPORT INFORMATION
  Report Type: 
  Country: None (occurrence: None)
  Receive Date: 20111221
  Receipt Date: 20110408
  Transmission Date: 20120403
  Serious: No
  Sender: FDA-Public Use
  Company Number: US-PFIZER INC-K201100453

PATIENT
  Sex: Male

DRUGS (2)
  1. EPIPEN [Suspect]
     Indication: ANAPHYLACTIC REACTION
     Dosage: 0.3 MG, TWICE
     Route: 030
     Dates: start: 20110407, end: 20110407
  2. EPIPEN [Suspect]
     Indication: HYPERSENSITIVITY

REACTIONS (1)
  - DRUG INEFFECTIVE [None]
